FAERS Safety Report 22083148 (Version 1)
Quarter: 2023Q1

REPORT INFORMATION
  Report Type: Spontaneous
  Country: FR (occurrence: FR)
  Receive Date: 20230310
  Receipt Date: 20230310
  Transmission Date: 20230417
  Serious: Yes (Death, Hospitalization)
  Sender: FDA-Public Use
  Company Number: None

PATIENT
  Age: 66 Year
  Sex: Female
  Weight: 93.5 kg

DRUGS (2)
  1. CARBOPLATIN [Suspect]
     Active Substance: CARBOPLATIN
     Indication: Ovarian cancer
     Dosage: STRENGTH: 10 MG/ML, SOLUTION FOR INFUSION
     Dates: start: 20220510, end: 20220708
  2. DOXORUBICIN HYDROCHLORIDE [Suspect]
     Active Substance: DOXORUBICIN HYDROCHLORIDE
     Indication: Ovarian cancer
     Dosage: STRENGTH: 2 MG/ML, CONCENTRATE FOR SOLUTION FOR INFUSION
     Dates: start: 20220510, end: 20220708

REACTIONS (2)
  - Pancytopenia [Not Recovered/Not Resolved]
  - Leukaemia [Fatal]

NARRATIVE: CASE EVENT DATE: 20220730
